FAERS Safety Report 16181342 (Version 1)
Quarter: 2019Q2

REPORT INFORMATION
  Report Type: Report from Study
  Country: US (occurrence: US)
  Receive Date: 20190410
  Receipt Date: 20190410
  Transmission Date: 20190711
  Serious: Yes (Other)
  Sender: FDA-Public Use
  Company Number: US-MALLINCKRODT-T201703822

PATIENT
  Sex: Male

DRUGS (2)
  1. REPOSITORY CORTICOTROPIN INJECTION [Suspect]
     Active Substance: CORTICOTROPIN
     Dosage: 40 UNITS/0.5 ML, 2 TIMES PER WEEK (MONDAY AND THURSDAY)
     Route: 058
  2. REPOSITORY CORTICOTROPIN INJECTION [Suspect]
     Active Substance: CORTICOTROPIN
     Indication: SARCOIDOSIS
     Dosage: 40 UNITS/0.5 ML, 2 TIMES PER WEEK (MONDAY AND THURSDAY)
     Route: 058
     Dates: start: 20170810

REACTIONS (4)
  - Hypertension [Not Recovered/Not Resolved]
  - Weight increased [Unknown]
  - Diabetes mellitus [Unknown]
  - Blood cholesterol increased [Unknown]
